FAERS Safety Report 15271229 (Version 5)
Quarter: 2018Q4

REPORT INFORMATION
  Report Type: Report from Study
  Country: US (occurrence: US)
  Receive Date: 20180813
  Receipt Date: 20181127
  Transmission Date: 20190204
  Serious: Yes (Life-Threatening, Hospitalization)
  Sender: FDA-Public Use
  Company Number: US-PFIZER INC-2018314448

PATIENT
  Age: 66 Year
  Sex: Male
  Weight: 68.3 kg

DRUGS (22)
  1. SYNTHROID [Concomitant]
     Active Substance: LEVOTHYROXINE SODIUM
     Dosage: 224 MCG DAILY
  2. FLOMAX [Concomitant]
     Active Substance: TAMSULOSIN HYDROCHLORIDE
     Dosage: UNK
  3. PIOGLITAZONE. [Concomitant]
     Active Substance: PIOGLITAZONE
     Dosage: 15 MG, DAILY
     Route: 048
  4. MONTELUKAST [Concomitant]
     Active Substance: MONTELUKAST SODIUM
     Dosage: 10 MG, DAILY
     Route: 048
  5. ALBUTEROL /00139501/ [Concomitant]
     Active Substance: ALBUTEROL
     Dosage: UNK
  6. LEVEMIR [Concomitant]
     Active Substance: INSULIN DETEMIR
     Dosage: 20 IU, QHS
     Route: 058
  7. RAMIPRIL. [Concomitant]
     Active Substance: RAMIPRIL
     Dosage: 2.5 MG, DAILY
     Route: 048
  8. PSEUDOEPHEDRINE. [Concomitant]
     Active Substance: PSEUDOEPHEDRINE HYDROCHLORIDE
     Dosage: ONE TAB P.O. P.R.N. AS NEEDED DAILY
     Route: 048
  9. AXITINIB [Suspect]
     Active Substance: AXITINIB
     Indication: RENAL CELL CARCINOMA
     Dosage: 5 MG, 2X/DAY
     Route: 048
     Dates: start: 20161025, end: 20180730
  10. CLARITIN [Concomitant]
     Active Substance: LORATADINE
     Dosage: ONE TAB P.O. P.R.N. AS NEEDED DAILY
     Route: 048
  11. SINGULAIR [Concomitant]
     Active Substance: MONTELUKAST SODIUM
     Dosage: UNK
  12. GLIMEPIRIDE. [Concomitant]
     Active Substance: GLIMEPIRIDE
     Dosage: 4 MG, DAILY
     Route: 048
  13. INSULIN DETEMIR [Concomitant]
     Active Substance: INSULIN DETEMIR
     Dosage: 20 UNITS Q.H.S
  14. LEVOFLOXACIN. [Suspect]
     Active Substance: LEVOFLOXACIN
     Indication: URINARY TRACT INFECTION
     Dosage: 250 MG Q.24 HOURS FOR A TOTAL OF 5 DAYS
     Dates: start: 20180801
  15. FENOFIBRIC ACID. [Concomitant]
     Active Substance: FENOFIBRIC ACID
     Dosage: UNK
  16. X4P-001 [Suspect]
     Active Substance: INVESTIGATIONAL PRODUCT
     Indication: RENAL CELL CARCINOMA
     Dosage: 400 MG, QD
     Route: 048
     Dates: start: 20161025, end: 20180730
  17. ADVAIR HFA [Concomitant]
     Active Substance: FLUTICASONE PROPIONATE\SALMETEROL XINAFOATE
     Dosage: 250 MCG/50 MCG ONE PUFF INHALE BID.
  18. FLONASE /00908302/ [Concomitant]
     Active Substance: MOMETASONE FUROATE
     Dosage: UNK
  19. ACTOS [Concomitant]
     Active Substance: PIOGLITAZONE HYDROCHLORIDE
     Dosage: UNK
  20. FENOFIBRATE. [Concomitant]
     Active Substance: FENOFIBRATE
     Dosage: 135 MG DAILY
  21. FLUTICASONE. [Concomitant]
     Active Substance: FLUTICASONE
     Dosage: TWO PUFFS PER NOSTRIL DAILY
     Route: 045
  22. TAMSULOSIN [Concomitant]
     Active Substance: TAMSULOSIN
     Dosage: 0.4 MG ONE CAP P.O. DAILY
     Route: 048

REACTIONS (3)
  - Liver injury [Recovered/Resolved]
  - Biliary tract disorder [Recovered/Resolved]
  - Ureterolithiasis [Recovered/Resolved]

NARRATIVE: CASE EVENT DATE: 20180731
